FAERS Safety Report 7384040-9 (Version None)
Quarter: 2011Q1

REPORT INFORMATION
  Report Type: 
  Country: None (occurrence: None)
  Receive Date: 20110322
  Receipt Date: 20110307
  Transmission Date: 20110831
  Serious: Yes (Hospitalization)
  Sender: FDA-Public Use
  Company Number: 029387

PATIENT
  Sex: Male

DRUGS (7)
  1. PREDNISOLONE [Concomitant]
  2. OMEPRAZOLE [Concomitant]
  3. FELBINAC [Concomitant]
  4. CERTOLIZUMAB PEGOL (CERTOLIZUMAB PEGOL) [Suspect]
     Indication: RHEUMATOID ARTHRITIS
     Dosage: 200 MG 1X2 WEEKS, SUBCUTANEOUS
     Route: 058
     Dates: start: 20100531
  5. BUTENAFINE HYDROCHLORIDE [Concomitant]
  6. LORNOXICAM [Concomitant]
  7. ETIZOLAM [Concomitant]

REACTIONS (2)
  - PNEUMONIA [None]
  - GAIT DISTURBANCE [None]
